FAERS Safety Report 16940995 (Version 3)
Quarter: 2022Q2

REPORT INFORMATION
  Report Type: Report from Study
  Country: CA (occurrence: CA)
  Receive Date: 20191021
  Receipt Date: 20220411
  Transmission Date: 20220720
  Serious: Yes (Hospitalization, Other)
  Sender: FDA-Public Use
  Company Number: CA-PFIZER INC-2019449344

PATIENT
  Age: 24 Year
  Sex: Female

DRUGS (18)
  1. AZITHROMYCIN [Suspect]
     Active Substance: AZITHROMYCIN
     Dosage: UNK UNK, DAILY
  2. ZITHROMAX [Suspect]
     Active Substance: AZITHROMYCIN DIHYDRATE
     Dosage: UNK
     Route: 065
  3. NUCALA [Suspect]
     Active Substance: MEPOLIZUMAB
     Indication: Asthma
     Dosage: 100 MG, MONTHLY
     Route: 042
     Dates: start: 20171003
  4. NUCALA [Suspect]
     Active Substance: MEPOLIZUMAB
     Dosage: 100 MG, MONTHLY
  5. NUCALA [Suspect]
     Active Substance: MEPOLIZUMAB
     Dosage: 100 MG, MONTHLY
  6. NUCALA [Suspect]
     Active Substance: MEPOLIZUMAB
     Dosage: 100 MG, MONTHLY
  7. NUCALA [Suspect]
     Active Substance: MEPOLIZUMAB
     Dosage: 100 MG, MONTHLY
  8. ADVAIR HFA [Suspect]
     Active Substance: FLUTICASONE PROPIONATE\SALMETEROL XINAFOATE
     Indication: Asthma
     Dosage: UNK, 2X/DAY (2.5)
     Route: 065
  9. VENTOLIN [Suspect]
     Active Substance: ALBUTEROL SULFATE
     Indication: Asthma
     Dosage: 2.5 MG, 2X/DAY
  10. VENTOLIN [Suspect]
     Active Substance: ALBUTEROL SULFATE
     Dosage: UNK, DAILY
  11. PREDNISONE [Suspect]
     Active Substance: PREDNISONE
     Dosage: GREATER THAN EQUAL TO 30 MG PER DAY
  12. PREDNISONE [Suspect]
     Active Substance: PREDNISONE
     Dosage: 12.5 MG, 1X/DAY
  13. PREDNISONE [Suspect]
     Active Substance: PREDNISONE
     Dosage: 10 MG, 1X/DAY
  14. PREDNISONE [Suspect]
     Active Substance: PREDNISONE
     Dosage: UNK
     Route: 065
  15. SINGULAIR [Suspect]
     Active Substance: MONTELUKAST SODIUM
     Dosage: 10 MG, DAILY
  16. SPIRIVA RESPIMAT [Suspect]
     Active Substance: TIOTROPIUM BROMIDE
     Dosage: 2.5 UG, 1X/DAY
     Dates: start: 201803
  17. MEPOLIZUMAB [Suspect]
     Active Substance: MEPOLIZUMAB
     Indication: Asthma
     Dosage: 100 MG
     Route: 058
  18. MEPOLIZUMAB [Suspect]
     Active Substance: MEPOLIZUMAB
     Dosage: 100 MG
     Route: 042

REACTIONS (10)
  - Asthma [Unknown]
  - Condition aggravated [Unknown]
  - Cystic fibrosis [Unknown]
  - Ill-defined disorder [Unknown]
  - Osteonecrosis [Unknown]
  - Lower respiratory tract infection [Unknown]
  - Therapeutic product effect incomplete [Unknown]
  - Pyrexia [Recovered/Resolved]
  - Ligament sprain [Unknown]
  - Ankle fracture [Unknown]

NARRATIVE: CASE EVENT DATE: 20181219
